FAERS Safety Report 6436303-9 (Version None)
Quarter: 2009Q4

REPORT INFORMATION
  Report Type: 
  Country: None (occurrence: None)
  Receive Date: 20091111
  Receipt Date: 20091103
  Transmission Date: 20100525
  Serious: Yes (Other)
  Sender: FDA-Public Use
  Company Number: B0580876A

PATIENT
  Age: 63 Year
  Sex: Female

DRUGS (1)
  1. SEROXAT [Suspect]
     Indication: DEPRESSION
     Route: 048

REACTIONS (3)
  - AGGRESSION [None]
  - OVERDOSE [None]
  - SUICIDE ATTEMPT [None]
